FAERS Safety Report 10243697 (Version 1)
Quarter: 2014Q2

REPORT INFORMATION
  Report Type: Report from Study
  Country: US (occurrence: US)
  Receive Date: 20140618
  Receipt Date: 20140618
  Transmission Date: 20141212
  Serious: Yes (Life-Threatening, Hospitalization)
  Sender: FDA-Public Use
  Company Number: US-SA-2014SA080152

PATIENT
  Age: 37 Year
  Sex: Female

DRUGS (2)
  1. CAMPATH [Suspect]
     Indication: IMMUNE THROMBOCYTOPENIC PURPURA
     Route: 065
     Dates: start: 201009
  2. CORTICOSTEROID NOS [Concomitant]
     Route: 042
     Dates: start: 201406

REACTIONS (1)
  - Gingival blister [Unknown]
